FAERS Safety Report 11324858 (Version 3)
Quarter: 2015Q3

REPORT INFORMATION
  Report Type: Spontaneous
  Country: JP (occurrence: JP)
  Receive Date: 20150730
  Receipt Date: 20150814
  Transmission Date: 20151125
  Serious: Yes (Death, Hospitalization)
  Sender: FDA-Public Use
  Company Number: JP-BAYER-2015-385757

PATIENT
  Age: 38 Year
  Sex: Male

DRUGS (2)
  1. ALCOHOL. [Concomitant]
     Active Substance: ALCOHOL
     Indication: COMPLETED SUICIDE
  2. BAYER ASPIRIN [Suspect]
     Active Substance: ASPIRIN
     Dosage: 155 G, ONCE (310 TABLETS)
     Route: 048

REACTIONS (16)
  - Hyperhidrosis [None]
  - Tachypnoea [None]
  - Cardiac arrest [Fatal]
  - Disseminated intravascular coagulation [None]
  - Metabolic acidosis [None]
  - Pyrexia [None]
  - Coagulation factor decreased [None]
  - Feeling abnormal [None]
  - Completed suicide [Fatal]
  - Mucosal haemorrhage [None]
  - Intentional overdose [None]
  - Irritability [None]
  - Bradycardia [None]
  - Tachycardia [None]
  - Haemorrhage subcutaneous [None]
  - Hypoglycaemia [None]
